FAERS Safety Report 7325491-8 (Version None)
Quarter: 2011Q1

REPORT INFORMATION
  Report Type: 
  Country: None (occurrence: None)
  Receive Date: 20110302
  Receipt Date: 20110223
  Transmission Date: 20110831
  Serious: Yes (Hospitalization)
  Sender: FDA-Public Use
  Company Number: US-ABBOTT-11P-163-0705626-00

PATIENT
  Sex: Male
  Weight: 66.284 kg

DRUGS (9)
  1. DOXYCYCLINE MONOHYDRATE [Concomitant]
     Indication: SYPHILIS
     Dates: start: 20101208
  2. RITONAVIR [Suspect]
     Indication: HIV INFECTION
     Route: 048
     Dates: start: 20100506
  3. ALBUTEROL SULFATE [Concomitant]
     Indication: PRODUCT USED FOR UNKNOWN INDICATION
     Dates: start: 19840101
  4. MUPIROCIN [Concomitant]
     Indication: SUBCUTANEOUS ABSCESS
     Route: 061
     Dates: start: 20101208
  5. EMTRICITABINE/TENOFOVIR DISOPROXIL FUMARATE [Concomitant]
     Indication: HIV INFECTION
     Dosage: 300 MG/200 MG
     Route: 048
     Dates: start: 20100506
  6. VALACICLOVIR [Concomitant]
     Indication: PRODUCT USED FOR UNKNOWN INDICATION
  7. DARUNAVIR [Concomitant]
     Indication: HIV INFECTION
     Route: 048
     Dates: start: 20100506
  8. AZITHROMYCIN [Concomitant]
     Indication: PRODUCT USED FOR UNKNOWN INDICATION
     Dates: start: 20100406
  9. PENICILLIN G BENZATHINE [Concomitant]
     Indication: SYPHILIS
     Dates: start: 20101208

REACTIONS (1)
  - PERIRECTAL ABSCESS [None]
